FAERS Safety Report 6293516-7 (Version None)
Quarter: 2009Q3

REPORT INFORMATION
  Report Type: 
  Country: None (occurrence: None)
  Receive Date: 20090729
  Receipt Date: 20090717
  Transmission Date: 20100115
  Serious: Yes (Life-Threatening)
  Sender: FDA-Public Use
  Company Number: 8049173

PATIENT
  Age: 60 Year
  Sex: Male
  Weight: 83.2 kg

DRUGS (4)
  1. KEPPRA [Suspect]
     Dosage: 500 MG 2/D PO
     Route: 048
     Dates: start: 19940101, end: 20090601
  2. KEPPRA [Suspect]
     Dosage: 500 MG /D PO
     Route: 048
     Dates: start: 20090601
  3. DEPAKOTE [Concomitant]
  4. VICODIN [Concomitant]

REACTIONS (4)
  - EAR PAIN [None]
  - EYE PAIN [None]
  - TRANSIENT ISCHAEMIC ATTACK [None]
  - TREATMENT NONCOMPLIANCE [None]
